FAERS Safety Report 6379936-0 (Version None)
Quarter: 2009Q3

REPORT INFORMATION
  Report Type: 
  Country: None (occurrence: None)
  Receive Date: 20090921
  Receipt Date: 20090520
  Transmission Date: 20100115
  Serious: Yes (Hospitalization)
  Sender: FDA-Public Use
  Company Number: 1000005575

PATIENT
  Age: 65 Year
  Sex: Female

DRUGS (1)
  1. CELEXA [Suspect]

REACTIONS (3)
  - BLOOD SODIUM DECREASED [None]
  - DEHYDRATION [None]
  - HYPERHIDROSIS [None]
